FAERS Safety Report 24570893 (Version 1)
Quarter: 2024Q4

REPORT INFORMATION
  Report Type: Spontaneous
  Country: FR (occurrence: FR)
  Receive Date: 20241101
  Receipt Date: 20241101
  Transmission Date: 20250115
  Serious: Yes (Other)
  Sender: ALEXION PHARMACEUTICALS
  Company Number: None

PATIENT
  Age: 76 Year

DRUGS (12)
  1. TICAGRELOR [Suspect]
     Active Substance: TICAGRELOR
  2. TICAGRELOR [Suspect]
     Active Substance: TICAGRELOR
  3. TICAGRELOR [Suspect]
     Active Substance: TICAGRELOR
  4. TICAGRELOR [Suspect]
     Active Substance: TICAGRELOR
  5. TAHOR [Suspect]
     Active Substance: ATORVASTATIN CALCIUM
     Indication: Myocardial ischaemia
  6. TAHOR [Suspect]
     Active Substance: ATORVASTATIN CALCIUM
  7. KARDEGIC [Concomitant]
     Active Substance: ASPIRIN DL-LYSINE
     Indication: Myocardial ischaemia
  8. KARDEGIC [Concomitant]
     Active Substance: ASPIRIN DL-LYSINE
  9. PANTOPRAZOLE [Concomitant]
     Active Substance: PANTOPRAZOLE
     Indication: Gastritis
  10. PANTOPRAZOLE [Concomitant]
     Active Substance: PANTOPRAZOLE
  11. BISOPROLOL [Concomitant]
     Active Substance: BISOPROLOL\BISOPROLOL FUMARATE
     Indication: Myocardial ischaemia
     Dosage: 2.5 MILLIGRAM, Q1H
  12. BISOPROLOL [Concomitant]
     Active Substance: BISOPROLOL\BISOPROLOL FUMARATE
     Dosage: 2.5 MILLIGRAM, Q1H

REACTIONS (1)
  - Hepatitis [Recovering/Resolving]
